FAERS Safety Report 9688268 (Version 1)
Quarter: 2013Q4

REPORT INFORMATION
  Report Type: Spontaneous
  Country: US (occurrence: None)
  Receive Date: 20131113
  Receipt Date: 20131113
  Transmission Date: 20140711
  Serious: Yes (Other)
  Sender: FDA-Public Use
  Company Number: None

PATIENT
  Age: 21 Year
  Sex: Male
  Weight: 113.4 kg

DRUGS (1)
  1. XZEN GOLD [Suspect]
     Indication: LIBIDO DECREASED
     Dosage: 1 CAPSULE AS NEEDED
     Route: 048
     Dates: start: 20131111, end: 20131111

REACTIONS (3)
  - Migraine [None]
  - Nausea [None]
  - Pain [None]
